FAERS Safety Report 15008930 (Version 4)
Quarter: 2019Q3

REPORT INFORMATION
  Report Type: Report from Study
  Country: FR (occurrence: FR)
  Receive Date: 20180614
  Receipt Date: 20190719
  Transmission Date: 20191004
  Serious: Yes (Other)
  Sender: FDA-Public Use
  Company Number: FR-ROCHE-2138403

PATIENT
  Age: 51 Year
  Sex: Female
  Weight: 70 kg

DRUGS (2)
  1. LENALIDOMIDE [Suspect]
     Active Substance: LENALIDOMIDE
     Indication: DIFFUSE LARGE B-CELL LYMPHOMA
     Dosage: 10/15/20/25MG?18 CYCLES FROM DAY 2 TO DAY 22 OF EACH CYCLE?LAST ADMINISTRATION OF LENALIDOMIDE 5 MG
     Route: 048
     Dates: start: 20160111
  2. OBINUTUZUMAB. [Suspect]
     Active Substance: OBINUTUZUMAB
     Indication: DIFFUSE LARGE B-CELL LYMPHOMA
     Dosage: ON D8, D15 AND D22OF CYCLE 1 AND ON D1 OF CYCLES 2 TO 6?LAST ADMINISTRATION OF OBINUTUZUMAB 1000 MG
     Route: 065
     Dates: start: 20160111

REACTIONS (1)
  - Meningioma [Recovered/Resolved]

NARRATIVE: CASE EVENT DATE: 20180517
